FAERS Safety Report 21974103 (Version 1)
Quarter: 2023Q1

REPORT INFORMATION
  Report Type: Spontaneous
  Country: RU (occurrence: RU)
  Receive Date: 20230209
  Receipt Date: 20230209
  Transmission Date: 20230417
  Serious: Yes (Other)
  Sender: FDA-Public Use
  Company Number: RU-BAYER-2023P007305

PATIENT
  Sex: Female

DRUGS (1)
  1. DIENOGEST\ESTRADIOL VALERATE [Suspect]
     Active Substance: DIENOGEST\ESTRADIOL VALERATE
     Dosage: UNK
     Route: 048

REACTIONS (4)
  - Poisoning [None]
  - Intermenstrual bleeding [Not Recovered/Not Resolved]
  - Product dose omission issue [None]
  - Vomiting [None]
